FAERS Safety Report 9199665 (Version 1)
Quarter: 2013Q1

REPORT INFORMATION
  Report Type: Spontaneous
  Country: FR (occurrence: FR)
  Receive Date: 20130329
  Receipt Date: 20130329
  Transmission Date: 20140127
  Serious: Yes (Hospitalization)
  Sender: FDA-Public Use
  Company Number: FR-PFIZER INC-2013098616

PATIENT
  Age: 64 Year
  Sex: Female

DRUGS (10)
  1. TAZOCILLINE [Suspect]
     Indication: INFECTION
     Dosage: 4 G, 2X/DAY
     Dates: start: 20130213, end: 20130304
  2. ZYVOXID [Suspect]
     Indication: INFECTION
     Dosage: 600 MG, 2X/DAY
     Dates: start: 20130213, end: 20130304
  3. LYRICA [Suspect]
     Dosage: 75 MG PER DAY
     Dates: end: 20130304
  4. TOPALGIC [Suspect]
     Indication: INFECTION
     Dosage: 200 MG A DAY
     Dates: end: 20130304
  5. INEXIUM [Concomitant]
     Dosage: 40 MG, 1X/DAY
  6. EZETROL [Concomitant]
     Dosage: 10 MG, 1X/DAY
  7. CRESTOR [Concomitant]
     Dosage: 20 MG, 1X/DAY
  8. IKOREL [Concomitant]
     Dosage: 10 MG, 3X/DAY
  9. PREVISCAN [Concomitant]
     Dosage: ALTERNATIVELY 0.5 TABLET AND 0.75 TABLET A DAY
  10. INSULIN [Concomitant]

REACTIONS (1)
  - Encephalopathy [Recovered/Resolved]
